FAERS Safety Report 7618168-2 (Version None)
Quarter: 2011Q3

REPORT INFORMATION
  Report Type: 
  Country: None (occurrence: None)
  Receive Date: 20110718
  Receipt Date: 20110623
  Transmission Date: 20111222
  Serious: Yes (Hospitalization)
  Sender: FDA-Public Use
  Company Number: US-GLAXOSMITHKLINE-A0869286A

PATIENT
  Age: 51 Year
  Sex: Female
  Weight: 84.5 kg

DRUGS (12)
  1. AVANDIA [Suspect]
     Indication: DIABETES MELLITUS
     Dosage: 4MG PER DAY
     Route: 048
     Dates: end: 20080101
  2. DIGOXIN [Concomitant]
  3. LISINOPRIL [Concomitant]
  4. METFORMIN HCL [Concomitant]
  5. CITALOPRAM HYDROBROMIDE [Concomitant]
  6. PREVACID [Concomitant]
  7. ESTROGENIC SUBSTANCE [Concomitant]
  8. LIPITOR [Concomitant]
  9. ATENOLOL [Concomitant]
  10. INSULIN [Concomitant]
  11. LOVASTATIN [Concomitant]
  12. LANSOPRAZOLE [Concomitant]

REACTIONS (3)
  - CORONARY ARTERIAL STENT INSERTION [None]
  - CARDIAC FAILURE CONGESTIVE [None]
  - RENAL FAILURE [None]
